FAERS Safety Report 16202227 (Version 6)
Quarter: 2020Q2

REPORT INFORMATION
  Report Type: Report from Study
  Country: BR (occurrence: BR)
  Receive Date: 20190416
  Receipt Date: 20200409
  Transmission Date: 20200713
  Serious: Yes (Other)
  Sender: FDA-Public Use
  Company Number: BR-ROCHE-2231940

PATIENT
  Age: 57 Year
  Sex: Male
  Weight: 89 kg

DRUGS (5)
  1. XOLAIR [Suspect]
     Active Substance: OMALIZUMAB
     Route: 058
     Dates: start: 20181109
  2. XOLAIR [Suspect]
     Active Substance: OMALIZUMAB
     Indication: URTICARIA
     Route: 058
     Dates: start: 201808
  3. XOLAIR [Suspect]
     Active Substance: OMALIZUMAB
     Route: 058
  4. XOLAIR [Suspect]
     Active Substance: OMALIZUMAB
     Route: 058
     Dates: start: 201812
  5. XOLAIR [Suspect]
     Active Substance: OMALIZUMAB
     Route: 058
     Dates: start: 20190107

REACTIONS (10)
  - Therapeutic product effect decreased [Unknown]
  - Skin discolouration [Recovering/Resolving]
  - Swelling face [Recovering/Resolving]
  - Dyspepsia [Unknown]
  - Pruritus [Unknown]
  - Peripheral swelling [Recovering/Resolving]
  - Drug hypersensitivity [Unknown]
  - Urticaria [Recovering/Resolving]
  - Hypersensitivity [Recovered/Resolved with Sequelae]
  - Gastrointestinal tract irritation [Unknown]

NARRATIVE: CASE EVENT DATE: 201902
